FAERS Safety Report 13849249 (Version 4)
Quarter: 2018Q2

REPORT INFORMATION
  Report Type: Report from Study
  Country: None (occurrence: DE)
  Receive Date: 20170809
  Receipt Date: 20180419
  Transmission Date: 20180711
  Serious: Yes (Hospitalization, Other)
  Sender: FDA-Public Use
  Company Number: DE-ABBVIE-17K-062-2058988-00

PATIENT
  Age: 46 Year
  Sex: Male
  Weight: 133 kg

DRUGS (8)
  1. GABAPENTIN. [Concomitant]
     Active Substance: GABAPENTIN
     Indication: PRODUCT USED FOR UNKNOWN INDICATION
     Route: 048
  2. ARCOXIA [Concomitant]
     Active Substance: ETORICOXIB
     Indication: PRODUCT USED FOR UNKNOWN INDICATION
     Route: 048
  3. METHOCARBAMOL. [Concomitant]
     Active Substance: METHOCARBAMOL
     Indication: PRODUCT USED FOR UNKNOWN INDICATION
     Route: 048
  4. HUMIRA [Suspect]
     Active Substance: ADALIMUMAB
     Indication: PSORIATIC ARTHROPATHY
     Route: 058
     Dates: start: 20170313, end: 2017
  5. XARELTO [Concomitant]
     Active Substance: RIVAROXABAN
     Indication: PRODUCT USED FOR UNKNOWN INDICATION
     Route: 048
     Dates: start: 20170713
  6. TORASEMID [Concomitant]
     Active Substance: TORSEMIDE
     Indication: PRODUCT USED FOR UNKNOWN INDICATION
     Route: 048
  7. HUMIRA [Suspect]
     Active Substance: ADALIMUMAB
     Indication: PSORIASIS
     Route: 058
  8. LEVOCETIRIZIN [Concomitant]
     Active Substance: LEVOCETIRIZINE DIHYDROCHLORIDE
     Indication: PRODUCT USED FOR UNKNOWN INDICATION
     Route: 048

REACTIONS (28)
  - Weight decreased [Recovered/Resolved]
  - Pulmonary embolism [Unknown]
  - Large intestine polyp [Recovered/Resolved]
  - Hepatic steatosis [Unknown]
  - Restlessness [Unknown]
  - Diarrhoea [Recovered/Resolved]
  - Chronic gastritis [Unknown]
  - Diverticulum intestinal [Unknown]
  - Malaise [Unknown]
  - Fibrin D dimer increased [Unknown]
  - Asthenia [Unknown]
  - Skin hyperpigmentation [Unknown]
  - Colonoscopy abnormal [Unknown]
  - Lymphoid hyperplasia of intestine [Unknown]
  - Gastritis [Unknown]
  - Pain in extremity [Recovered/Resolved]
  - Irritable bowel syndrome [Recovered/Resolved]
  - Chest pain [Recovered/Resolved]
  - Hepatomegaly [Recovered/Resolved]
  - Hiatus hernia [Recovered/Resolved]
  - Gastric cyst [Unknown]
  - Duodenitis [Unknown]
  - Erythema [Unknown]
  - Haemorrhoids [Unknown]
  - Hepatic steatosis [Recovered/Resolved]
  - Nephrolithiasis [Unknown]
  - Oedema peripheral [Unknown]
  - Drug ineffective [Unknown]

NARRATIVE: CASE EVENT DATE: 20170315
